FAERS Safety Report 16229547 (Version 4)
Quarter: 2019Q2

REPORT INFORMATION
  Report Type: Report from Study
  Country: FR (occurrence: FR)
  Receive Date: 20190423
  Receipt Date: 20190514
  Transmission Date: 20190711
  Serious: Yes (Hospitalization)
  Sender: FDA-Public Use
  Company Number: PHHO2019FR003361

PATIENT
  Age: 35 Year
  Weight: 65.6 kg

DRUGS (49)
  1. PREDNISONE. [Concomitant]
     Active Substance: PREDNISONE
     Dosage: UNK
     Route: 065
     Dates: start: 20190304, end: 20190305
  2. PREDNISONE. [Concomitant]
     Active Substance: PREDNISONE
     Dosage: UNK
     Route: 065
     Dates: start: 20190306, end: 20190314
  3. EUPRESSYL [Concomitant]
     Active Substance: URAPIDIL
     Dosage: UNK
     Route: 065
     Dates: start: 20190304, end: 20190304
  4. VALGANCICLOVIR. [Concomitant]
     Active Substance: VALGANCICLOVIR
     Dosage: UNK
     Route: 065
     Dates: start: 20190305, end: 20190310
  5. PENTAMIDINE [Concomitant]
     Active Substance: PENTAMIDINE
     Indication: GENERAL PHYSICAL CONDITION
     Dosage: UNK
     Route: 065
     Dates: start: 20190228
  6. CHLORIDE SODIUM [Concomitant]
     Dosage: UNK
     Route: 065
     Dates: start: 20190306, end: 20190307
  7. OFLOXACINE [Concomitant]
     Active Substance: OFLOXACIN
     Indication: HYPERTHERMIA
  8. PANTOPRAZOLE [Concomitant]
     Active Substance: PANTOPRAZOLE
     Indication: GASTRITIS
     Dosage: UNK
     Route: 065
     Dates: start: 20190228, end: 20190303
  9. PANTOPRAZOLE [Concomitant]
     Active Substance: PANTOPRAZOLE
     Dosage: UNK
     Route: 065
     Dates: start: 20190314, end: 20190323
  10. MYCOPHENOLATE MOFETIL. [Suspect]
     Active Substance: MYCOPHENOLATE MOFETIL
     Indication: RENAL TRANSPLANT
     Dosage: 1 G, BID
     Route: 048
     Dates: start: 20190214
  11. VELPHORO [Concomitant]
     Active Substance: FERRIC OXYHYDROXIDE
     Indication: HYPERPHOSPHATAEMIA
     Dosage: UNK
     Route: 065
     Dates: start: 20190301, end: 20190305
  12. LINEZOLIDE [Concomitant]
     Active Substance: LINEZOLID
     Dosage: UNK
     Route: 065
     Dates: start: 20190314, end: 20190314
  13. SODIUM BICARBONATE. [Concomitant]
     Active Substance: SODIUM BICARBONATE
     Indication: ACIDOSIS
     Dosage: UNK
     Route: 065
     Dates: start: 20190307, end: 20190325
  14. SODIUM BICARBONATE. [Concomitant]
     Active Substance: SODIUM BICARBONATE
     Dosage: UNK
     Route: 065
     Dates: start: 20190327
  15. PANTOPRAZOLE [Concomitant]
     Active Substance: PANTOPRAZOLE
     Dosage: UNK
     Route: 065
     Dates: start: 20190305, end: 20190307
  16. ONDANSETRON [Concomitant]
     Active Substance: ONDANSETRON
     Indication: VOMITING
     Dosage: UNK
     Route: 065
     Dates: start: 20190304, end: 20190304
  17. CEFTRIAXONE. [Concomitant]
     Active Substance: CEFTRIAXONE
     Indication: PYELONEPHRITIS
     Dosage: UNK
     Route: 065
     Dates: start: 20190309, end: 20190310
  18. VALGANCICLOVIR. [Concomitant]
     Active Substance: VALGANCICLOVIR
     Indication: GENERAL PHYSICAL CONDITION
     Dosage: UNK
     Route: 065
     Dates: start: 20190225, end: 20190304
  19. MAGNESIUM [Concomitant]
     Active Substance: MAGNESIUM
     Indication: HYPOMAGNESAEMIA
     Dosage: UNK
     Route: 065
     Dates: start: 20190313, end: 20190313
  20. OXYBUTYNINE [Concomitant]
     Active Substance: OXYBUTYNIN CHLORIDE
     Indication: PYELONEPHRITIS
     Dosage: UNK
     Route: 065
     Dates: start: 20190309, end: 20190309
  21. TRAMADOL. [Concomitant]
     Active Substance: TRAMADOL
     Indication: ABDOMINAL PAIN
     Dosage: UNK
     Route: 065
     Dates: start: 20190228, end: 20190305
  22. PREDNISONE. [Concomitant]
     Active Substance: PREDNISONE
     Indication: RENAL TRANSPLANT
     Dosage: UNK
     Route: 065
     Dates: start: 20190301, end: 20190302
  23. VENOFER [Concomitant]
     Active Substance: IRON SUCROSE
     Indication: ANAEMIA
     Dosage: UNK
     Route: 065
     Dates: start: 20190305, end: 20190305
  24. LEVOFLOXACINE [Concomitant]
     Active Substance: LEVOFLOXACIN
     Indication: PYELONEPHRITIS
     Dosage: UNK
     Route: 065
     Dates: start: 20190314, end: 20190323
  25. OXYBUTYNINE [Concomitant]
     Active Substance: OXYBUTYNIN CHLORIDE
     Dosage: UNK
     Route: 065
     Dates: start: 20190310, end: 20190310
  26. AMLOR [Concomitant]
     Active Substance: AMLODIPINE BESYLATE
     Indication: HYPERTENSION
     Dosage: UNK
     Route: 065
     Dates: start: 20190216
  27. SEVELAMER [Concomitant]
     Active Substance: SEVELAMER
     Indication: DELAYED GRAFT FUNCTION
     Dosage: UNK
     Route: 065
     Dates: start: 20190301, end: 20190305
  28. PREDNISONE. [Concomitant]
     Active Substance: PREDNISONE
     Dosage: UNK
     Route: 065
     Dates: start: 20190315
  29. PARACETAMOL [Concomitant]
     Active Substance: ACETAMINOPHEN
     Indication: ABDOMINAL PAIN
     Dosage: UNK
     Route: 065
     Dates: start: 20190228, end: 20190306
  30. VELPHORO [Concomitant]
     Active Substance: FERRIC OXYHYDROXIDE
     Indication: DELAYED GRAFT FUNCTION
  31. EUPRESSYL [Concomitant]
     Active Substance: URAPIDIL
     Indication: HYPERTENSION
     Dosage: UNK
     Route: 065
     Dates: start: 20190218, end: 20190303
  32. EUPRESSYL [Concomitant]
     Active Substance: URAPIDIL
     Dosage: UNK
     Route: 065
     Dates: start: 20190308, end: 20190328
  33. VALGANCICLOVIR. [Concomitant]
     Active Substance: VALGANCICLOVIR
     Dosage: UNK
     Route: 065
     Dates: start: 20190311
  34. CALCIUM CARBONATE. [Concomitant]
     Active Substance: CALCIUM CARBONATE
     Indication: HYPOCALCAEMIA
     Dosage: UNK
     Route: 065
     Dates: start: 20190309, end: 20190319
  35. LINEZOLIDE [Concomitant]
     Active Substance: LINEZOLID
     Dosage: UNK
     Route: 065
     Dates: start: 20190311, end: 20190313
  36. OXYBUTYNINE [Concomitant]
     Active Substance: OXYBUTYNIN CHLORIDE
     Dosage: UNK
     Route: 065
     Dates: start: 20190311, end: 20190311
  37. SODIUM BICARBONATE. [Concomitant]
     Active Substance: SODIUM BICARBONATE
     Dosage: UNK
     Route: 065
     Dates: start: 20190219, end: 20190306
  38. POTASSIUM CHLORIDE. [Concomitant]
     Active Substance: POTASSIUM CHLORIDE
     Indication: PRODUCT USED FOR UNKNOWN INDICATION
     Dosage: UNK
     Route: 065
  39. ACIDE FOLIQUE [Concomitant]
     Active Substance: FOLIC ACID
     Indication: ANAEMIA
     Dosage: UNK
     Route: 065
     Dates: start: 20190226
  40. CHLORIDE SODIUM [Concomitant]
     Indication: DEHYDRATION
     Dosage: UNK
     Route: 065
     Dates: start: 20190228, end: 20190306
  41. OXYCODONE [Concomitant]
     Active Substance: OXYCODONE
     Indication: GENERAL PHYSICAL CONDITION
     Dosage: UNK
     Route: 065
     Dates: start: 20190304, end: 20190304
  42. NEFOPAM [Concomitant]
     Active Substance: NEFOPAM
     Indication: GENERAL PHYSICAL CONDITION
     Dosage: UNK
     Route: 065
     Dates: start: 20190306, end: 20190306
  43. LINEZOLIDE [Concomitant]
     Active Substance: LINEZOLID
     Indication: PYELONEPHRITIS
     Dosage: UNK
     Route: 065
     Dates: start: 20190310, end: 20190310
  44. OFLOXACINE [Concomitant]
     Active Substance: OFLOXACIN
     Indication: PYELONEPHRITIS
     Dosage: UNK
     Route: 065
     Dates: start: 20190324, end: 20190325
  45. SODIUM BICARBONATE. [Concomitant]
     Active Substance: SODIUM BICARBONATE
     Dosage: UNK
     Route: 065
     Dates: start: 20190326, end: 20190326
  46. CFZ533 [Suspect]
     Active Substance: ISCALIMAB
     Indication: RENAL TRANSPLANT
     Dosage: 13 ML, OTHER
     Route: 042
     Dates: start: 20190214
  47. DARBEPOETINE ALFA [Concomitant]
     Active Substance: DARBEPOETIN ALFA
     Indication: ANAEMIA
     Dosage: UNK
     Route: 065
     Dates: start: 20190301
  48. EUPRESSYL [Concomitant]
     Active Substance: URAPIDIL
     Dosage: UNK
     Route: 065
     Dates: start: 20190305, end: 20190307
  49. NEBIVOLOL. [Concomitant]
     Active Substance: NEBIVOLOL
     Indication: HYPERTENSION
     Dosage: UNK
     Route: 005
     Dates: start: 20190216

REACTIONS (1)
  - Hyperthermia [Recovered/Resolved with Sequelae]

NARRATIVE: CASE EVENT DATE: 20190323
